FAERS Safety Report 5293032-5 (Version None)
Quarter: 2007Q2

REPORT INFORMATION
  Report Type: 
  Country: None (occurrence: None)
  Receive Date: 20070411
  Receipt Date: 20070327
  Transmission Date: 20071010
  Serious: Yes (Hospitalization)
  Sender: FDA-Public Use
  Company Number: TW-AVENTIS-200711726EU

PATIENT
  Age: 23 Year
  Sex: Male

DRUGS (3)
  1. OMEPRAZOLE [Suspect]
  2. METRONIDAZOLE [Suspect]
  3. CLARITHROMYCIN [Suspect]

REACTIONS (4)
  - DYSPEPSIA [None]
  - HICCUPS [None]
  - NAUSEA [None]
  - PNEUMOMEDIASTINUM [None]
